FAERS Safety Report 7117961-2 (Version None)
Quarter: 2010Q4

REPORT INFORMATION
  Report Type: 
  Country: None (occurrence: None)
  Receive Date: 20101123
  Receipt Date: 20101117
  Transmission Date: 20110411
  Serious: Yes (Death)
  Sender: FDA-Public Use
  Company Number: PHHY2010BR78201

PATIENT
  Sex: Female

DRUGS (4)
  1. DIOVAN [Suspect]
  2. DIOVAN [Suspect]
     Dosage: 160/5 MG
  3. GALVUS MET COMBIPACK [Suspect]
     Dosage: 50/850 MG
  4. GALVUS MET [Suspect]
     Dosage: 50/850 MG

REACTIONS (1)
  - DEATH [None]
